FAERS Safety Report 8851098 (Version 2)
Quarter: 2012Q4

REPORT INFORMATION
  Report Type: Report from Study
  Country: JP (occurrence: JP)
  Receive Date: 20121019
  Receipt Date: 20121116
  Transmission Date: 20130627
  Serious: Yes (Hospitalization)
  Sender: FDA-Public Use
  Company Number: JP-VERTEX PHARMACEUTICAL INC.-2012-023161

PATIENT
  Age: 73 Year
  Sex: Male

DRUGS (12)
  1. VX-950 (TELAPREVIR) [Suspect]
     Indication: CHRONIC HEPATITIS C
     Dosage: 1500 mg, qd
     Route: 048
     Dates: start: 20120813, end: 20120903
  2. RIBAVIRIN [Suspect]
     Indication: CHRONIC HEPATITIS C
     Dosage: 200 mg, qd
     Route: 048
     Dates: start: 20120813, end: 20120903
  3. PEGINTERFERON ALFA-2B [Suspect]
     Indication: CHRONIC HEPATITIS C
     Dosage: 1.5 ?g/kg,qw
     Route: 058
     Dates: start: 20120813, end: 20120827
  4. URSO                               /00465701/ [Concomitant]
     Dosage: 600 mg, qd
     Route: 048
  5. TAKEPRON [Concomitant]
     Dosage: 15 mg, qd
     Route: 048
  6. BAYASPIRIN [Concomitant]
     Dosage: 100 mg, qd
     Route: 048
  7. METGLUCO [Concomitant]
     Dosage: 250 mg, qd
     Route: 048
  8. METGLUCO [Concomitant]
     Dosage: 500 mg, qd
     Route: 048
  9. GLUBES [Concomitant]
     Route: 048
  10. LOXONIN [Concomitant]
     Dosage: 60 mg, prn
     Route: 048
     Dates: start: 20120813
  11. AMOBAN [Concomitant]
     Dosage: 5 mg, prn
     Route: 048
     Dates: start: 20120823
  12. LUNESTA [Concomitant]
     Dosage: 1 mg, prn
     Route: 048
     Dates: start: 20120903

REACTIONS (4)
  - Pneumonia [Recovered/Resolved]
  - Renal impairment [Recovered/Resolved]
  - Decreased appetite [Recovered/Resolved]
  - Anaemia [Recovered/Resolved]
